FAERS Safety Report 5579112-5 (Version None)
Quarter: 2008Q1

REPORT INFORMATION
  Report Type: 
  Country: None (occurrence: None)
  Receive Date: 20080102
  Receipt Date: 20071219
  Transmission Date: 20080703
  Serious: Yes (Hospitalization, Other)
  Sender: FDA-Public Use
  Company Number: US-AMGEN-QUU247067

PATIENT
  Sex: Female
  Weight: 64 kg

DRUGS (15)
  1. ENBREL [Suspect]
     Indication: JUVENILE ARTHRITIS
     Route: 058
     Dates: start: 20050201, end: 20070901
  2. TOLECTIN [Concomitant]
  3. VIOXX [Concomitant]
  4. PREDNISONE TAB [Concomitant]
     Route: 048
  5. ZANTAC [Concomitant]
  6. ARAVA [Concomitant]
  7. METHOTREXATE [Concomitant]
     Dates: end: 20071001
  8. NYSTATIN [Concomitant]
  9. CENTRUM [Concomitant]
  10. SODIUM BICARBONATE [Concomitant]
  11. RANITIDINE HYDROCHLORIDE [Concomitant]
  12. SULINDAC [Concomitant]
  13. CALCITRIOL [Concomitant]
  14. METHOTREXATE SODIUM [Concomitant]
  15. CLARITHROMYCIN [Concomitant]

REACTIONS (21)
  - ANAEMIA [None]
  - CATARACT [None]
  - CEREBRAL ARTERY OCCLUSION [None]
  - CERUMEN IMPACTION [None]
  - CONSTIPATION [None]
  - DEAFNESS NEUROSENSORY [None]
  - DENTAL CARIES [None]
  - GLAUCOMA SURGERY [None]
  - HAEMATOCHEZIA [None]
  - HYPERTENSION [None]
  - MASTOIDITIS [None]
  - MUCOSAL INFLAMMATION [None]
  - MUSCLE SPASMS [None]
  - NUCLEAR MAGNETIC RESONANCE IMAGING BRAIN ABNORMAL [None]
  - OESOPHAGITIS [None]
  - OSTEOPOROSIS [None]
  - RENAL FAILURE ACUTE [None]
  - SUBCUTANEOUS NODULE [None]
  - UPPER RESPIRATORY TRACT INFECTION [None]
  - VAGINAL INFECTION [None]
  - VIRAL INFECTION [None]
